FAERS Safety Report 9426302 (Version 1)
Quarter: 2013Q3

REPORT INFORMATION
  Report Type: Spontaneous
  Country: US (occurrence: None)
  Receive Date: 20130729
  Receipt Date: 20130729
  Transmission Date: 20140515
  Serious: Yes (Other)
  Sender: FDA-Public Use
  Company Number: None

PATIENT
  Age: 78 Year
  Sex: Female
  Weight: 78.93 kg

DRUGS (1)
  1. HERCEPTIN [Suspect]
     Dosage: 643 EVERY 3 WEEKS IVSS
     Dates: start: 20130726

REACTIONS (2)
  - Tremor [None]
  - Chills [None]
